FAERS Safety Report 5224850-7 (Version None)
Quarter: 2007Q1

REPORT INFORMATION
  Report Type: 
  Country: None (occurrence: None)
  Receive Date: 20070131
  Receipt Date: 20070118
  Transmission Date: 20070707
  Serious: Yes (Hospitalization)
  Sender: FDA-Public Use
  Company Number: JP-KINGPHARMUSA00001-K200700069

PATIENT

DRUGS (2)
  1. EPIPEN [Suspect]
     Indication: ASTHMA
     Dosage: 2.4 MG
     Route: 058
  2. METHYLPREDNISOLONE 16MG TAB [Concomitant]
     Indication: ASTHMA
     Route: 042

REACTIONS (4)
  - CARDIOMYOPATHY [None]
  - DRUG INEFFECTIVE [None]
  - ECHOCARDIOGRAM ABNORMAL [None]
  - ELECTROCARDIOGRAM ABNORMAL [None]
